FAERS Safety Report 23883584 (Version 1)
Quarter: 2024Q2

REPORT INFORMATION
  Report Type: Spontaneous
  Country: US (occurrence: None)
  Receive Date: 20240521
  Receipt Date: 20240521
  Transmission Date: 20240716
  Serious: Yes (Hospitalization)
  Sender: FDA-Public Use
  Company Number: None

PATIENT
  Age: 77 Year
  Sex: Male
  Weight: 95.2 kg

DRUGS (1)
  1. APIXABAN [Suspect]
     Active Substance: APIXABAN
     Indication: Haematuria
     Dosage: 5 MG BID PO
     Route: 048
     Dates: start: 20230706, end: 20240203

REACTIONS (7)
  - Haematuria [None]
  - Dysuria [None]
  - Haemorrhage [None]
  - Haemoglobin decreased [None]
  - Haematocrit decreased [None]
  - Platelet count decreased [None]
  - Influenza [None]

NARRATIVE: CASE EVENT DATE: 20240201
